FAERS Safety Report 7411789-1 (Version None)
Quarter: 2011Q2

REPORT INFORMATION
  Report Type: 
  Country: None (occurrence: None)
  Receive Date: 20110413
  Receipt Date: 20110119
  Transmission Date: 20111010
  Serious: No
  Sender: FDA-Public Use
  Company Number: US-BRISTOL-MYERS SQUIBB COMPANY-15496235

PATIENT
  Age: 62 Year
  Sex: Male
  Weight: 98 kg

DRUGS (5)
  1. INSULIN [Concomitant]
     Dosage: INSULIN LONG AND SHORT ACTING
  2. CRESTOR [Concomitant]
     Dosage: EVERY OTHER DAY
  3. COUMADIN [Concomitant]
  4. COMBIZAR [Concomitant]
  5. ERBITUX [Suspect]
     Dates: start: 20100801

REACTIONS (1)
  - OROPHARYNGEAL PAIN [None]
